FAERS Safety Report 5358554-7 (Version None)
Quarter: 2007Q2

REPORT INFORMATION
  Report Type: 
  Country: None (occurrence: None)
  Receive Date: 20070613
  Receipt Date: 20070613
  Transmission Date: 20071010
  Serious: Yes (Other)
  Sender: FDA-Public Use
  Company Number: None

PATIENT
  Sex: Male
  Weight: 70.3075 kg

DRUGS (2)
  1. FINASTERIDE [Suspect]
     Indication: ALOPECIA
     Dosage: 1/4 TABLET (1,25MG) DAILY PO
     Route: 048
     Dates: start: 20070201, end: 20070501
  2. FINASTERIDE [Suspect]
     Indication: PROPHYLAXIS
     Dosage: 1/4 TABLET (1,25MG) DAILY PO
     Route: 048
     Dates: start: 20070201, end: 20070501

REACTIONS (3)
  - CRYING [None]
  - DEPRESSED MOOD [None]
  - DEPRESSION [None]
